FAERS Safety Report 5712952-8 (Version None)
Quarter: 2008Q2

REPORT INFORMATION
  Report Type: 
  Country: None (occurrence: None)
  Receive Date: 20080418
  Receipt Date: 20080410
  Transmission Date: 20081010
  Serious: Yes (Life-Threatening, Hospitalization)
  Sender: FDA-Public Use
  Company Number: 062-21880-08040167

PATIENT
  Age: 70 Year
  Sex: Female
  Weight: 76 kg

DRUGS (2)
  1. REVLIMID [Suspect]
     Indication: MULTIPLE MYELOMA
     Dosage: 25 MG, ORAL
     Route: 048
     Dates: start: 20071129, end: 20080212
  2. FRAXIPARIN   (HEPARIN-FRACTION, CALCIUM SALT) [Concomitant]

REACTIONS (3)
  - INFARCTION [None]
  - PNEUMONIA [None]
  - PULMONARY EMBOLISM [None]
